FAERS Safety Report 7791489-9 (Version None)
Quarter: 2011Q4

REPORT INFORMATION
  Report Type: 
  Country: None (occurrence: None)
  Receive Date: 20111003
  Receipt Date: 20110921
  Transmission Date: 20120403
  Serious: Yes (Other)
  Sender: FDA-Public Use
  Company Number: AU-JNJFOC-20110911937

PATIENT
  Sex: Female

DRUGS (3)
  1. TRAMADOL HCL [Suspect]
     Indication: PRODUCT USED FOR UNKNOWN INDICATION
     Route: 065
  2. ARAVA [Concomitant]
     Route: 065
  3. METHOTREXATE [Suspect]
     Indication: PRODUCT USED FOR UNKNOWN INDICATION
     Route: 065

REACTIONS (5)
  - RECTAL HAEMORRHAGE [None]
  - MOUTH ULCERATION [None]
  - DIZZINESS [None]
  - HEART RATE INCREASED [None]
  - VAGINAL HAEMORRHAGE [None]
